FAERS Safety Report 24935727 (Version 1)
Quarter: 2025Q1

REPORT INFORMATION
  Report Type: Report from Study
  Country: US (occurrence: US)
  Receive Date: 20250206
  Receipt Date: 20250206
  Transmission Date: 20250409
  Serious: Yes (Other)
  Sender: EXELIXIS
  Company Number: US-EXELIXIS-CABO-24080577

PATIENT
  Sex: Male

DRUGS (11)
  1. CABOMETYX [Suspect]
     Active Substance: CABOZANTINIB S-MALATE
     Indication: Bone cancer
     Dosage: 60 MG, QD
     Dates: start: 20240730
  2. CABOMETYX [Suspect]
     Active Substance: CABOZANTINIB S-MALATE
     Indication: Chondrosarcoma
  3. PREGABALIN [Concomitant]
     Active Substance: PREGABALIN
  4. BACLOFEN [Concomitant]
     Active Substance: BACLOFEN
  5. OXYCODONE [Concomitant]
     Active Substance: OXYCODONE
  6. HYDROXYZINE PAMOATE [Concomitant]
     Active Substance: HYDROXYZINE PAMOATE
  7. BUPROPION [Concomitant]
     Active Substance: BUPROPION
  8. FAMOTIDINE [Concomitant]
     Active Substance: FAMOTIDINE
  9. OLANZAPINE [Concomitant]
     Active Substance: OLANZAPINE
  10. FENTANYL [Concomitant]
     Active Substance: FENTANYL
  11. SENNA [Concomitant]
     Active Substance: SENNOSIDES

REACTIONS (13)
  - Hypothyroidism [Unknown]
  - Red blood cell count decreased [Not Recovered/Not Resolved]
  - Weight decreased [Not Recovered/Not Resolved]
  - Stomatitis [Recovered/Resolved]
  - Rash [Recovered/Resolved]
  - Fatigue [Not Recovered/Not Resolved]
  - Constipation [Recovering/Resolving]
  - Blood magnesium decreased [Not Recovered/Not Resolved]
  - Blister [Recovered/Resolved]
  - Platelet count decreased [Unknown]
  - Peripheral swelling [Not Recovered/Not Resolved]
  - Hospice care [Unknown]
  - Off label use [Unknown]
